FAERS Safety Report 4636966-4 (Version None)
Quarter: 2005Q2

REPORT INFORMATION
  Report Type: 
  Country: None (occurrence: None)
  Receive Date: 20050414
  Receipt Date: 20050405
  Transmission Date: 20051028
  Serious: Yes (Death, Hospitalization)
  Sender: FDA-Public Use
  Company Number: HQWYE878108MAR05

PATIENT
  Age: 56 Year
  Sex: Female

DRUGS (10)
  1. RAPAMUNE [Suspect]
     Indication: IMMUNOSUPPRESSANT DRUG THERAPY
     Dosage: 2 MG 1X PER 1 DAY; ORAL
     Route: 048
     Dates: start: 20050128, end: 20050219
  2. RAPAMUNE [Suspect]
     Indication: RENAL TRANSPLANT
     Dosage: 2 MG 1X PER 1 DAY; ORAL
     Route: 048
     Dates: start: 20050128, end: 20050219
  3. TACROLIMUS [Concomitant]
  4. MEPREDNISONE [Concomitant]
  5. NIFEDIPINE [Concomitant]
  6. ATORVASTATIN CALCIUM [Concomitant]
  7. SULFAMETHOXAZOLE + TRIMETHOPRIM [Concomitant]
  8. OMEPRAZOLE [Concomitant]
  9. NISTATIN (NYSTATIN) [Concomitant]
  10. ISONIAZID [Concomitant]

REACTIONS (13)
  - ANAEMIA [None]
  - CARDIAC ARREST [None]
  - DEHYDRATION [None]
  - DIARRHOEA [None]
  - DILATATION ATRIAL [None]
  - EPISTAXIS [None]
  - GASTROINTESTINAL DISORDER [None]
  - LUNG INFILTRATION [None]
  - METABOLIC ACIDOSIS [None]
  - PULMONARY HAEMORRHAGE [None]
  - PYREXIA [None]
  - VENTRICULAR FIBRILLATION [None]
  - VENTRICULAR HYPERTROPHY [None]
